FAERS Safety Report 8530708-8 (Version None)
Quarter: 2012Q3

REPORT INFORMATION
  Report Type: 
  Country: None (occurrence: None)
  Receive Date: 20120723
  Receipt Date: 20120713
  Transmission Date: 20120928
  Serious: Yes (Other)
  Sender: FDA-Public Use
  Company Number: US-ASTRAZENECA-2012SE49457

PATIENT
  Age: 67 Year
  Sex: Female

DRUGS (3)
  1. OMEPRAZOLE [Suspect]
     Route: 048
  2. NEXIUM [Suspect]
     Route: 048
  3. SYMBICORT [Suspect]
     Route: 055

REACTIONS (3)
  - DRUG DOSE OMISSION [None]
  - LUNG NEOPLASM MALIGNANT [None]
  - DRUG EFFECT DECREASED [None]
